FAERS Safety Report 5888831-2 (Version None)
Quarter: 2008Q3

REPORT INFORMATION
  Report Type: 
  Country: None (occurrence: None)
  Receive Date: 20080916
  Receipt Date: 20080901
  Transmission Date: 20090109
  Serious: Yes (Death, Hospitalization, Disabling)
  Sender: FDA-Public Use
  Company Number: 2008S1015900

PATIENT
  Age: 84 Year
  Sex: Male

DRUGS (4)
  1. AMIODARONE HCL [Suspect]
     Indication: VENTRICULAR TACHYCARDIA
     Dosage: 200 MG; ORAL
     Route: 048
     Dates: start: 19970101
  2. ASPIRIN [Concomitant]
  3. SALBUTAMOL (SALBUTAMOL) [Concomitant]
  4. LEVOTHYROXINE SODIUM [Concomitant]

REACTIONS (1)
  - PULMONARY FIBROSIS [None]
